FAERS Safety Report 5143020-4 (Version None)
Quarter: 2006Q4

REPORT INFORMATION
  Report Type: 
  Country: None (occurrence: None)
  Receive Date: 20061103
  Receipt Date: 20060302
  Transmission Date: 20070319
  Serious: Yes (Other)
  Sender: FDA-Public Use
  Company Number: US-ELI_LILLY_AND_COMPANY-US200605001997

PATIENT
  Age: 36 Year
  Sex: Male
  Weight: 56.235 kg

DRUGS (7)
  1. ZYPREXA [Suspect]
     Dosage: 10 MG, UNK
     Dates: start: 19990101
  2. ZYPREXA [Suspect]
     Dosage: 20 MG, UNK
     Dates: end: 20030101
  3. ZIPRASIDONE [Concomitant]
     Dates: start: 20010101, end: 20040101
  4. HALOPERIDOL [Concomitant]
     Dates: start: 20010101, end: 20040101
  5. PERPHENAZINE [Concomitant]
     Dates: start: 20010101, end: 20040101
  6. FLUOXETINE                              /N/A/ [Concomitant]
     Dates: start: 20030101, end: 20050101
  7. SERTRALINE [Concomitant]
     Dates: start: 20000101, end: 20030101

REACTIONS (4)
  - DIABETES MELLITUS [None]
  - HYPERGLYCAEMIA [None]
  - HYPERTENSION [None]
  - RESPIRATORY FAILURE [None]
